FAERS Safety Report 26020314 (Version 1)
Quarter: 2025Q4

REPORT INFORMATION
  Report Type: Spontaneous
  Country: US (occurrence: US)
  Receive Date: 20251110
  Receipt Date: 20251110
  Transmission Date: 20260117
  Serious: No
  Sender: GALPHARM INTERNATIONAL
  Company Number: US-PERRIGO-25US008045

PATIENT
  Sex: Female

DRUGS (2)
  1. POLYETHYLENE GLYCOL 3350 [Suspect]
     Active Substance: POLYETHYLENE GLYCOL 3350
     Indication: Crohn^s disease
     Dosage: 17 G, UNKNOWN
     Route: 048
     Dates: start: 2009, end: 202504
  2. POLYETHYLENE GLYCOL 3350 [Suspect]
     Active Substance: POLYETHYLENE GLYCOL 3350
     Indication: Crohn^s disease
     Dosage: 25.5 G, UNKNOWN
     Route: 048
     Dates: start: 202504

REACTIONS (2)
  - Incorrect product administration duration [Unknown]
  - Off label use [Unknown]

NARRATIVE: CASE EVENT DATE: 20250401
